FAERS Safety Report 9062012 (Version 2)
Quarter: 2013Q2

REPORT INFORMATION
  Report Type: Spontaneous
  Country: DK (occurrence: DK)
  Receive Date: 20130204
  Receipt Date: 20130409
  Transmission Date: 20140414
  Serious: Yes (Death)
  Sender: FDA-Public Use
  Company Number: DK-ELI_LILLY_AND_COMPANY-DK201301008454

PATIENT
  Age: 54 Year
  Sex: Male

DRUGS (12)
  1. ZYPADHERA [Suspect]
     Indication: SCHIZOPHRENIA
     Dosage: 405 MG, EVERY 14 DAYS
     Dates: start: 20120423
  2. TRILEPTAL [Concomitant]
     Indication: EPILEPSY
     Dosage: 600 MG, TID
  3. AKINETON                                /AUS/ [Concomitant]
     Dosage: 2 MG, QD
  4. ACETYLSALICYLIC ACID [Concomitant]
     Dosage: 75 MG, QD
  5. CITALOPRAM [Concomitant]
     Dosage: 20 MG, QD
  6. OMEPRAZOLE [Concomitant]
     Dosage: 20 MG, QD
  7. ASASANTIN - SLOW RELEASE [Concomitant]
     Dosage: 1 DF, BID
  8. CORODIL [Concomitant]
     Dosage: 5 MG, QD
  9. SYMBICORT TURBUHALER ^ASTRAZENECA^ [Concomitant]
     Dosage: 7 DF, BID
  10. CALCIUM [Concomitant]
     Dosage: UNK, UNKNOWN
  11. TIAMIN NAF [Concomitant]
     Dosage: 300 MG, QD
  12. IRON [Concomitant]
     Dosage: UNK, UNKNOWN

REACTIONS (2)
  - Death [Fatal]
  - Overdose [Not Recovered/Not Resolved]
